FAERS Safety Report 21325121 (Version 2)
Quarter: 2022Q4

REPORT INFORMATION
  Report Type: Spontaneous
  Country: DE (occurrence: DE)
  Receive Date: 20220912
  Receipt Date: 20221101
  Transmission Date: 20230112
  Serious: Yes (Congenital Anomaly)
  Sender: FDA-Public Use
  Company Number: DE-SERVIER-S16012494

PATIENT

DRUGS (3)
  1. SERTRALINE [Suspect]
     Active Substance: SERTRALINE HYDROCHLORIDE
     Indication: Product used for unknown indication
     Dosage: 150 MG, 1X/DAY QD
     Route: 064
  2. AGOMELATINE [Suspect]
     Active Substance: AGOMELATINE
     Indication: Product used for unknown indication
     Dosage: 50 MG, 1X/DAY QD
     Route: 064
  3. LITHIUM [Suspect]
     Active Substance: LITHIUM
     Indication: Product used for unknown indication
     Dosage: 16.2 TO 27.0 MMOL DAILY
     Route: 064

REACTIONS (2)
  - Hypotonia neonatal [Unknown]
  - Foetal exposure during pregnancy [Recovered/Resolved]
